FAERS Safety Report 4314854-0 (Version None)
Quarter: 2004Q1

REPORT INFORMATION
  Report Type: 
  Country: None (occurrence: None)
  Receive Date: 20040308
  Receipt Date: 20040225
  Transmission Date: 20041129
  Serious: Yes (Hospitalization)
  Sender: FDA-Public Use
  Company Number: NLWYE602725FEB04

PATIENT
  Age: 63 Year
  Sex: Male

DRUGS (18)
  1. BISOPROLOL FUMARATE [Suspect]
     Indication: ATRIAL FIBRILLATION
     Dosage: ORAL; 5 MG 2X PETR 1 DAY ORAL; 7.5 MG 1X PER 1 DAY ORAL
     Route: 048
     Dates: end: 20030101
  2. BISOPROLOL FUMARATE [Suspect]
     Indication: ATRIAL FLUTTER
     Dosage: ORAL; 5 MG 2X PETR 1 DAY ORAL; 7.5 MG 1X PER 1 DAY ORAL
     Route: 048
     Dates: end: 20030101
  3. BISOPROLOL FUMARATE [Suspect]
     Indication: ATRIAL FIBRILLATION
     Dosage: ORAL; 5 MG 2X PETR 1 DAY ORAL; 7.5 MG 1X PER 1 DAY ORAL
     Route: 048
     Dates: start: 20030101, end: 20030311
  4. BISOPROLOL FUMARATE [Suspect]
     Indication: ATRIAL FLUTTER
     Dosage: ORAL; 5 MG 2X PETR 1 DAY ORAL; 7.5 MG 1X PER 1 DAY ORAL
     Route: 048
     Dates: start: 20030101, end: 20030311
  5. BISOPROLOL FUMARATE [Suspect]
     Indication: ATRIAL FIBRILLATION
     Dosage: ORAL; 5 MG 2X PETR 1 DAY ORAL; 7.5 MG 1X PER 1 DAY ORAL
     Route: 048
     Dates: start: 20030311
  6. BISOPROLOL FUMARATE [Suspect]
     Indication: ATRIAL FLUTTER
     Dosage: ORAL; 5 MG 2X PETR 1 DAY ORAL; 7.5 MG 1X PER 1 DAY ORAL
     Route: 048
     Dates: start: 20030311
  7. ACENOCOUMAROL (ACENOCOUMAROL) [Concomitant]
  8. LANOXIN [Concomitant]
  9. FOLIC ACID [Concomitant]
  10. VITAMIN B-COMPLEX (VITAMIN B-COMPLEX) [Concomitant]
  11. MAGNESIUM OXIDE (MAGNESIUM OXIDE) [Concomitant]
  12. FUROSEMIDE [Concomitant]
  13. ASCORBIC ACID [Concomitant]
  14. LIPITOR [Concomitant]
  15. POTASSIUM CHLORIDE [Concomitant]
  16. CAPTOPRIL [Concomitant]
  17. ISORDIL [Concomitant]
  18. OXAZEPAM [Concomitant]

REACTIONS (1)
  - SLEEP APNOEA SYNDROME [None]
